APPROVED DRUG PRODUCT: NEVIRAPINE
Active Ingredient: NEVIRAPINE
Strength: 100MG
Dosage Form/Route: TABLET, EXTENDED RELEASE;ORAL
Application: A208616 | Product #001
Applicant: AUROBINDO PHARMA LTD
Approved: Nov 23, 2016 | RLD: No | RS: No | Type: DISCN